FAERS Safety Report 11466358 (Version 10)
Quarter: 2017Q2

REPORT INFORMATION
  Report Type: Report from Study
  Country: US (occurrence: US)
  Receive Date: 20150907
  Receipt Date: 20170623
  Transmission Date: 20170829
  Serious: No
  Sender: FDA-Public Use
  Company Number: PHEH2015US017336

PATIENT
  Age: 31 Year
  Sex: Male

DRUGS (2)
  1. AFINITOR [Suspect]
     Active Substance: EVEROLIMUS
     Indication: ANGIOMYOLIPOMA
     Dosage: 10 MG, QD
     Route: 048
     Dates: start: 20150824
  2. TEGRETOL [Concomitant]
     Active Substance: CARBAMAZEPINE
     Indication: PRODUCT USED FOR UNKNOWN INDICATION
     Route: 065

REACTIONS (16)
  - Skin irritation [Unknown]
  - Blood cholesterol increased [Unknown]
  - Dry skin [Unknown]
  - Irritability [Unknown]
  - Fatigue [Unknown]
  - Insomnia [Unknown]
  - Stomatitis [Recovered/Resolved]
  - Acne [Unknown]
  - Migraine [Recovering/Resolving]
  - Headache [Unknown]
  - Feeling abnormal [Unknown]
  - Blood glucose increased [Unknown]
  - Chest pain [Recovered/Resolved]
  - Feeling jittery [Unknown]
  - Head discomfort [Not Recovered/Not Resolved]
  - Paraesthesia [Unknown]

NARRATIVE: CASE EVENT DATE: 20150826
